FAERS Safety Report 6665463-X (Version None)
Quarter: 2010Q2

REPORT INFORMATION
  Report Type: 
  Country: None (occurrence: None)
  Receive Date: 20100402
  Receipt Date: 20100324
  Transmission Date: 20101027
  Serious: Yes (Other)
  Sender: FDA-Public Use
  Company Number: US-JNJFOC-20100308464

PATIENT
  Age: 55 Year
  Sex: Male
  Weight: 68.04 kg

DRUGS (1)
  1. SUDAFED 24 HOUR [Suspect]
     Indication: HYPERSENSITIVITY
     Route: 048

REACTIONS (1)
  - DYSURIA [None]
